FAERS Safety Report 24905784 (Version 1)
Quarter: 2025Q1

REPORT INFORMATION
  Report Type: Other
  Country: AU (occurrence: AU)
  Receive Date: 20250130
  Receipt Date: 20250130
  Transmission Date: 20250409
  Serious: Yes (Hospitalization, Other)
  Sender: NUVO PHARMACEUTICALS
  Company Number: AU-Nuvo Pharmaceuticals Inc-2170115

PATIENT
  Age: 4 Decade
  Sex: Female

DRUGS (1)
  1. OXYCODONE HYDROCHLORIDE [Suspect]
     Active Substance: OXYCODONE HYDROCHLORIDE
     Indication: Product used for unknown indication

REACTIONS (4)
  - Pulmonary hypertension [Recovered/Resolved]
  - Wrong technique in product usage process [Unknown]
  - Reaction to excipient [Recovered/Resolved]
  - Pulmonary granuloma [Recovered/Resolved]
